FAERS Safety Report 11328321 (Version 1)
Quarter: 2015Q3

REPORT INFORMATION
  Report Type: Spontaneous
  Country: BR (occurrence: BR)
  Receive Date: 20150731
  Receipt Date: 20150731
  Transmission Date: 20151125
  Serious: Yes (Other)
  Sender: FDA-Public Use
  Company Number: BR-ABBVIE-15K-020-1435607-00

PATIENT
  Sex: Female

DRUGS (1)
  1. HUMIRA [Suspect]
     Active Substance: ADALIMUMAB
     Indication: CROHN^S DISEASE
     Route: 065

REACTIONS (9)
  - Decreased appetite [Unknown]
  - Abscess [Unknown]
  - Drug intolerance [Unknown]
  - Pain [Unknown]
  - Depressed mood [Unknown]
  - Intestinal perforation [Unknown]
  - Colectomy [Unknown]
  - Feeling of despair [Not Recovered/Not Resolved]
  - Abdominal pain upper [Unknown]
